FAERS Safety Report 8750491 (Version 2)
Quarter: 2012Q4

REPORT INFORMATION
  Report Type: 
  Country: US (occurrence: None)
  Receive Date: 20120809
  Receipt Date: 20120821
  Transmission Date: 20130627
  Serious: Yes (Death)
  Sender: FDA-Public Use
  Company Number: 2012GMK002255

PATIENT
  Age: 87 Year
  Sex: Male

DRUGS (11)
  1. OXCARBAZEPINE [Suspect]
     Indication: NEUROPATHIC PAIN
  2. OXCARBAZEPINE [Suspect]
  3. SERTRALINE HYDROCHLORIDE [Suspect]
     Indication: PRODUCT USED FOR UNKNOWN INDICATION
     Route: 048
  4. ASPIRIN (ACETYLSALICYLIC ACID) [Concomitant]
  5. ATENOLOL (ATENOLOL) [Concomitant]
  6. IPRATROPIUM BROMIDE (IPRATROPIUM BROMIDE) [Concomitant]
  7. ALBUTEROL SULFATE (SALBUTAMOL SULFATE) [Concomitant]
  8. FUROSEMIDE (FUROSEMIDE) [Concomitant]
  9. GABAPENTIN (GABAPENTIN) [Concomitant]
  10. GLIPIZIDE (GLIPIZIDE) [Concomitant]
  11. LEVOFLOXACIN (LEVOFLOXACIN) [Concomitant]

REACTIONS (2)
  - Drug interaction [None]
  - Serotonin syndrome [None]
